FAERS Safety Report 6223104-X (Version None)
Quarter: 2009Q2

REPORT INFORMATION
  Report Type: 
  Country: None (occurrence: None)
  Receive Date: 20090609
  Receipt Date: 20090529
  Transmission Date: 20091009
  Serious: Yes (Hospitalization)
  Sender: FDA-Public Use
  Company Number: 1000006551

PATIENT
  Age: 85 Year
  Sex: Male

DRUGS (7)
  1. NEBIVOLOL HCL [Suspect]
     Dosage: 5 MG  (5 MG, 1 IN 1 D),ORAL
     Route: 048
  2. CARYOLYSINE [Suspect]
     Indication: MYCOSIS FUNGOIDES
     Dosage: TOPICAL
     Route: 061
     Dates: start: 19850101, end: 19940101
  3. RILMENIDINE [Suspect]
     Dosage: 2 MG (2 MG, 1 IN 1 D), ORAL
     Route: 048
  4. IRBESARTAN [Suspect]
     Dosage: 150 MG (150 MG, 1 IN 1 D), ORAL
     Route: 048
  5. LERCAN [Suspect]
     Dosage: 20 MG (20 MG, 1 IN 1 D),ORAL
     Route: 048
  6. BUMEX [Suspect]
     Dosage: 1 MG (1 MG, 1 IN 1 D),ORAL
     Route: 048
  7. SYMBICORT [Concomitant]

REACTIONS (1)
  - HODGKIN'S DISEASE [None]
